FAERS Safety Report 6084500-7 (Version None)
Quarter: 2009Q1

REPORT INFORMATION
  Report Type: 
  Country: None (occurrence: None)
  Receive Date: 20090219
  Receipt Date: 20090206
  Transmission Date: 20090719
  Serious: Yes (Hospitalization)
  Sender: FDA-Public Use
  Company Number: GB-PFIZER INC-2009167876

PATIENT

DRUGS (10)
  1. DALTEPARIN SODIUM [Suspect]
     Indication: LUNG NEOPLASM MALIGNANT
     Dosage: UNK
     Dates: start: 20090127
  2. CARBOPLATIN [Suspect]
     Dosage: 395 MG, UNK
     Dates: start: 20090129
  3. VINORELBINE [Suspect]
     Dosage: 120 MG, UNK
     Route: 048
     Dates: start: 20090129
  4. IRON SULFATETHIAMIN COMPOUND TAB [Concomitant]
     Dosage: UNK
     Route: 048
  5. QUININE [Concomitant]
     Dosage: UNK
     Route: 048
  6. CO-DYDRAMOL [Concomitant]
     Dosage: UNK
     Route: 048
  7. PHENOBARBITAL [Concomitant]
     Dosage: 60 MG, 2X/DAY
     Route: 048
  8. LANSOPRAZOLE [Concomitant]
     Dosage: 30 MG, 1X/DAY
     Route: 048
     Dates: start: 20090129
  9. PHENYTOIN [Concomitant]
     Dosage: 200 MG, 2X/DAY
     Route: 048
  10. DEXAMETHASONE TAB [Concomitant]
     Dosage: 4 MG, 3X/DAY
     Route: 048
     Dates: start: 20090130, end: 20090201

REACTIONS (1)
  - CHEST PAIN [None]
